FAERS Safety Report 9680401 (Version 2)
Quarter: 2013Q4

REPORT INFORMATION
  Report Type: Spontaneous
  Country: BR (occurrence: BR)
  Receive Date: 20131111
  Receipt Date: 20131111
  Transmission Date: 20140711
  Serious: Yes (Other)
  Sender: FDA-Public Use
  Company Number: BR-AMGEN-BRASP2012010314

PATIENT
  Age: 51 Year
  Sex: Male
  Weight: 90 kg

DRUGS (22)
  1. ENBREL [Suspect]
     Indication: ANKYLOSING SPONDYLITIS
     Dosage: 25 MG, TWICE WEEKLY
     Route: 058
     Dates: start: 20090112
  2. ENBREL [Suspect]
     Dosage: 2 AMPOULES (25MG EACH), ONCE WEEKLY (50 MG, WEEKLY)
     Route: 065
     Dates: start: 200907
  3. METHOTREXATE SODIUM [Suspect]
     Indication: PRODUCT USED FOR UNKNOWN INDICATION
     Dosage: UNK
     Route: 065
  4. SULFASALAZINE [Concomitant]
     Indication: SPONDYLITIS
     Dosage: UNK
  5. AAS [Concomitant]
     Indication: MYOCARDIAL ISCHAEMIA
     Dosage: UNK
  6. CAPTOPRIL [Concomitant]
     Dosage: UNK
  7. SIMVASTATIN [Concomitant]
     Dosage: UNK
  8. MONOCORDIL [Concomitant]
     Dosage: UNK
  9. HYDROCHLOROTHIAZIDE [Concomitant]
     Indication: CARDIAC DISORDER
     Dosage: UNK
  10. ALENIA                             /01538101/ [Concomitant]
     Indication: LUNG DISORDER
     Dosage: UNK
  11. ALENIA                             /01538101/ [Concomitant]
     Indication: ASTHMA
  12. ALLOPURINOL [Concomitant]
     Indication: RENAL DISORDER
     Dosage: UNK
  13. ALLOPURINOL [Concomitant]
     Indication: RENAL DISORDER
  14. OMEPRAZOLE [Concomitant]
     Indication: GASTRIC DISORDER
     Dosage: UNK
  15. FRONTAL XR [Concomitant]
     Indication: SLEEP DISORDER
     Dosage: UNK
  16. DILTIAZEM [Concomitant]
     Indication: MYOCARDIAL ISCHAEMIA
     Dosage: UNK
  17. DILTIAZEM [Concomitant]
     Indication: MYOCARDIAL ISCHAEMIA
  18. LOSARTAN [Concomitant]
     Indication: MYOCARDIAL ISCHAEMIA
     Dosage: UNK
  19. LOSARTAN [Concomitant]
     Indication: MYOCARDIAL ISCHAEMIA
  20. ATORVASTATIN [Concomitant]
     Indication: MYOCARDIAL ISCHAEMIA
     Dosage: UNK
  21. ATORVASTATIN [Concomitant]
     Indication: MYOCARDIAL ISCHAEMIA
  22. CABERGOLINE [Concomitant]
     Indication: PROTEIN TOTAL INCREASED
     Dosage: UNK

REACTIONS (7)
  - Pituitary tumour benign [Unknown]
  - VIIth nerve paralysis [Recovered/Resolved]
  - Bronchospasm [Unknown]
  - Eye swelling [Unknown]
  - Ocular hyperaemia [Unknown]
  - Blood prolactin increased [Unknown]
  - Eye infection [Unknown]
